FAERS Safety Report 18149625 (Version 1)
Quarter: 2020Q3

REPORT INFORMATION
  Report Type: Spontaneous
  Country: NL (occurrence: NL)
  Receive Date: 20200814
  Receipt Date: 20200814
  Transmission Date: 20201103
  Serious: Yes (Death, Life-Threatening)
  Sender: FDA-Public Use
  Company Number: NL-TEVA-2020-NL-1813798

PATIENT
  Sex: Female

DRUGS (1)
  1. SUMATRIPTAN / BRAND NAME NOT SPECIFIED [Suspect]
     Active Substance: SUMATRIPTAN
     Indication: CLUSTER HEADACHE
     Dosage: 0 ? 2 TIMES A DAY:THERAPY END DATE :ASKED BUT UNKNOWN :UNIT DOSE:1 DOSAGEFORM
     Dates: start: 20200614

REACTIONS (1)
  - Myocardial infarction [Fatal]
